FAERS Safety Report 8429381-9 (Version None)
Quarter: 2012Q2

REPORT INFORMATION
  Report Type: 
  Country: None (occurrence: None)
  Receive Date: 20120612
  Receipt Date: 20120607
  Transmission Date: 20120825
  Serious: Yes (Other)
  Sender: FDA-Public Use
  Company Number: US-PFIZER INC-2012137319

PATIENT
  Age: 41 Year
  Sex: Female

DRUGS (1)
  1. DILANTIN-125 [Suspect]
     Dosage: 30 MG, UNK

REACTIONS (3)
  - DRUG INEFFECTIVE [None]
  - CONVULSION [None]
  - DRUG LEVEL DECREASED [None]
